FAERS Safety Report 5509157-2 (Version None)
Quarter: 2007Q4

REPORT INFORMATION
  Report Type: 
  Country: None (occurrence: None)
  Receive Date: 20071107
  Receipt Date: 20071030
  Transmission Date: 20080405
  Serious: Yes (Hospitalization, Other)
  Sender: FDA-Public Use
  Company Number: GB-ROCHE-503939

PATIENT
  Age: 13 Year
  Sex: Male

DRUGS (7)
  1. MYCOPHENOLATE MOFETIL [Suspect]
     Route: 048
     Dates: start: 20070219
  2. FK506 [Suspect]
     Route: 048
     Dates: start: 20070219
  3. HEPARIN [Suspect]
     Indication: CENTRAL VENOUS CATHETERISATION
     Route: 042
     Dates: start: 20070219
  4. PREDNISOLONE [Concomitant]
  5. PHOSPHATE-SANDOZ [Concomitant]
  6. RANITIDINE [Concomitant]
  7. AMPHOTERICIN B [Concomitant]

REACTIONS (3)
  - HAEMORRHAGE [None]
  - OVERDOSE [None]
  - URINOMA [None]
